FAERS Safety Report 9486377 (Version 2)
Quarter: 2013Q3

REPORT INFORMATION
  Report Type: Spontaneous
  Country: US (occurrence: US)
  Receive Date: 20130829
  Receipt Date: 20130911
  Transmission Date: 20140515
  Serious: Yes (Hospitalization, Other)
  Sender: FDA-Public Use
  Company Number: US-009507513-1308USA013231

PATIENT
  Sex: Male

DRUGS (8)
  1. PEGINTRON [Suspect]
     Indication: HEPATITIS C
     Dosage: UNK
     Dates: start: 20020101
  2. PEGINTRON [Suspect]
     Dosage: UNK
     Dates: start: 20040801, end: 20060701
  3. PEGINTRON [Suspect]
     Dosage: UNK
     Dates: start: 20110101, end: 20120102
  4. PEGINTRON [Suspect]
     Dosage: UNK
     Dates: start: 20110201, end: 20120201
  5. REBETOL [Suspect]
     Indication: HEPATITIS C
     Dosage: UNK
     Dates: start: 20020101
  6. REBETOL [Suspect]
     Dosage: UNK
     Dates: start: 20040801, end: 20060701
  7. REBETOL [Suspect]
     Dosage: UNK
     Dates: start: 20110101, end: 20120101
  8. REBETOL [Suspect]
     Dosage: UNK
     Dates: start: 20110201, end: 20120201

REACTIONS (24)
  - Hepatic cancer [Unknown]
  - Diabetes mellitus [Unknown]
  - Local swelling [Unknown]
  - Liver transplant [Unknown]
  - Anaemia [Unknown]
  - White blood cell count [Unknown]
  - Swelling [Unknown]
  - Haemorrhage [Unknown]
  - Pain [Unknown]
  - Blood bilirubin increased [Unknown]
  - Malaise [Unknown]
  - Hypertension [Unknown]
  - Depression [Unknown]
  - Asthenia [Unknown]
  - Pruritus [Unknown]
  - Viral load increased [Unknown]
  - Fatigue [Unknown]
  - Asthenia [Unknown]
  - Fatigue [Unknown]
  - Fluid retention [Unknown]
  - Hepatitis C [Unknown]
  - Fatigue [Unknown]
  - Hepatitis C [Unknown]
  - Asthenia [Unknown]
